FAERS Safety Report 14030339 (Version 1)
Quarter: 2017Q4

REPORT INFORMATION
  Report Type: Spontaneous
  Country: US (occurrence: US)
  Receive Date: 20171001
  Receipt Date: 20171001
  Transmission Date: 20180321
  Serious: Yes (Life-Threatening, Hospitalization)
  Sender: FDA-Public Use
  Company Number: US-ROCHE-1996757

PATIENT
  Age: 59 Year
  Sex: Female
  Weight: 58.5 kg

DRUGS (40)
  1. BERAPROST SODIUM [Suspect]
     Active Substance: BERAPROST SODIUM
     Indication: PULMONARY ARTERIAL HYPERTENSION
     Route: 048
     Dates: start: 20161213
  2. CALCIUM CARBONATE. [Concomitant]
     Active Substance: CALCIUM CARBONATE
     Indication: PULMONARY ARTERIAL HYPERTENSION
     Dosage: 1000 MG QD VIA PO ROUTE FOR
     Route: 048
  3. LASIX [Concomitant]
     Active Substance: FUROSEMIDE
     Indication: PULMONARY ARTERIAL HYPERTENSION
     Dosage: 20 MG TWICE A DAY (BID) VIA PO ROUTE FOR PAH
     Route: 048
  4. PRILOSEC [Concomitant]
     Active Substance: OMEPRAZOLE MAGNESIUM
     Indication: GASTROOESOPHAGEAL REFLUX DISEASE
     Dosage: 20 MOQD VIA PO ROUTE FOR GERD
     Route: 048
  5. TUMS [Concomitant]
     Active Substance: CALCIUM CARBONATE
  6. PYRIDOXINE HYDROCHLORIDE. [Concomitant]
     Active Substance: PYRIDOXINE HYDROCHLORIDE
  7. RETINOL [Concomitant]
     Active Substance: RETINOL
  8. THIAMINE HYDROCHLORIDE. [Concomitant]
     Active Substance: THIAMINE HYDROCHLORIDE
  9. BETA-CAROTENE FORTE [Concomitant]
  10. BIOTIN [Concomitant]
     Active Substance: BIOTIN
  11. FOLIC ACID. [Concomitant]
     Active Substance: FOLIC ACID
  12. CALCIUM PANTOTHENATE [Concomitant]
     Active Substance: CALCIUM PANTOTHENATE
  13. PYRIDOXINE HYDROCHLORIDE. [Concomitant]
     Active Substance: PYRIDOXINE HYDROCHLORIDE
  14. SILDENAFIL. [Concomitant]
     Active Substance: SILDENAFIL
     Indication: PULMONARY ARTERIAL HYPERTENSION
     Route: 048
  15. PREDNISONE. [Concomitant]
     Active Substance: PREDNISONE
     Indication: SCLERODERMA
     Dosage: 10 MG QD VIA PO ROUTE FOR SCLERODERMA
     Route: 048
  16. DL-ALPHA TOCOPHERYL ACETATE [Concomitant]
  17. CYANOCOBALAMIN. [Concomitant]
     Active Substance: CYANOCOBALAMIN
  18. MAGNESIUM SULFATE. [Concomitant]
     Active Substance: MAGNESIUM SULFATE
  19. REVATIO [Concomitant]
     Active Substance: SILDENAFIL CITRATE
  20. ASCORBIC ACID. [Concomitant]
     Active Substance: ASCORBIC ACID
  21. NICOTINAMIDE [Concomitant]
     Active Substance: NIACINAMIDE
  22. TYVASO [Suspect]
     Active Substance: TREPROSTINIL
     Indication: PULMONARY ARTERIAL HYPERTENSION
     Dosage: 0.6 MG/ML
     Route: 050
     Dates: start: 20160525
  23. REVATIO [Concomitant]
     Active Substance: SILDENAFIL CITRATE
     Route: 065
     Dates: start: 20160616
  24. CHROMIC CHLORIDE. [Concomitant]
     Active Substance: CHROMIC CHLORIDE
  25. THIAMINE MONONITRATE [Concomitant]
     Active Substance: THIAMINE MONONITRATE
  26. ZINC OXIDE. [Concomitant]
     Active Substance: ZINC OXIDE
     Dosage: 1 TABLET QD VIA PO ROUTE FOR GENERAL HEALTH
     Route: 048
  27. BACTRIM [Concomitant]
     Active Substance: SULFAMETHOXAZOLE\TRIMETHOPRIM
     Indication: SCLERODERMA
     Dosage: 800 MG THREE TIMES A WEEK VIA PO ROUTE FOR SCLERODERMA
     Route: 048
  28. NICOTINAMIDE [Concomitant]
     Active Substance: NIACINAMIDE
  29. CYTOXAN [Suspect]
     Active Substance: CYCLOPHOSPHAMIDE
     Indication: SCLERODERMA
     Route: 041
     Dates: start: 20161011
  30. FERROUS FUMARATE [Concomitant]
     Active Substance: FERROUS FUMARATE
  31. KLOR-CON [Concomitant]
     Active Substance: POTASSIUM CHLORIDE
     Indication: PULMONARY ARTERIAL HYPERTENSION
     Dosage: POTASSIUM CHLORIDE 20 MEQ QD VIA PO ROUTE FOR PAH
     Route: 048
  32. MAGNESIUM OXIDE. [Concomitant]
     Active Substance: MAGNESIUM OXIDE
  33. ZOFRAN [Concomitant]
     Active Substance: ONDANSETRON HYDROCHLORIDE
     Route: 048
  34. ERGOCALCIFEROL. [Concomitant]
     Active Substance: ERGOCALCIFEROL
  35. RIBOFLAVIN [Concomitant]
     Active Substance: RIBOFLAVIN
  36. CELLCEPT [Suspect]
     Active Substance: MYCOPHENOLATE MOFETIL\MYCOPHENOLATE MOFETIL HYDROCHLORIDE
     Indication: SCLERODERMA
     Route: 048
     Dates: start: 20170403
  37. PROCARDIA (UNITED STATES) [Concomitant]
     Indication: PULMONARY ARTERIAL HYPERTENSION
     Dosage: 90 MG ONCE DAILY (QD) VIA PO ROUTE FOR PAH
     Route: 048
  38. PHYTOMENADIONE [Concomitant]
     Active Substance: PHYTONADIONE
     Route: 065
  39. RETINOL ACETATE [Concomitant]
  40. RIBOFLAVIN [Concomitant]
     Active Substance: RIBOFLAVIN

REACTIONS (5)
  - Right-to-left cardiac shunt [Recovering/Resolving]
  - Respiratory failure [Recovered/Resolved]
  - Off label use [Unknown]
  - Respiratory syncytial virus infection [Recovering/Resolving]
  - Intentional product use issue [Unknown]

NARRATIVE: CASE EVENT DATE: 2017
